FAERS Safety Report 17202668 (Version 2)
Quarter: 2019Q4

REPORT INFORMATION
  Report Type: Spontaneous
  Country: RU (occurrence: RU)
  Receive Date: 20191226
  Receipt Date: 20191230
  Transmission Date: 20200122
  Serious: Yes (Death, Hospitalization)
  Sender: FDA-Public Use
  Company Number: RU-JNJFOC-20191230070

PATIENT
  Age: 59 Year
  Sex: Male

DRUGS (2)
  1. ACETYLSALICYLIC ACID [Suspect]
     Active Substance: ASPIRIN
     Indication: PRODUCT USED FOR UNKNOWN INDICATION
     Dosage: UNK
     Route: 065
     Dates: start: 20191112, end: 20191119
  2. XARELTO [Suspect]
     Active Substance: RIVAROXABAN
     Indication: PRODUCT USED FOR UNKNOWN INDICATION
     Dosage: 2 MG, BID
     Route: 048
     Dates: start: 20191112, end: 20191119

REACTIONS (2)
  - Pulmonary embolism [Fatal]
  - Death [Fatal]

NARRATIVE: CASE EVENT DATE: 2019
